FAERS Safety Report 23018148 (Version 1)
Quarter: 2023Q4

REPORT INFORMATION
  Report Type: Other
  Country: GB (occurrence: GB)
  Receive Date: 20231003
  Receipt Date: 20231003
  Transmission Date: 20240110
  Serious: Yes (Other)
  Sender: FDA-Public Use
  Company Number: GB-CELLTRION INC.-2023GB019006

PATIENT

DRUGS (7)
  1. INFLIXIMAB [Suspect]
     Active Substance: INFLIXIMAB
     Indication: Product used for unknown indication
     Dosage: 450 MG
  2. HYDROCORTISONE [Concomitant]
     Active Substance: HYDROCORTISONE
  3. CETIRIZINE [Concomitant]
     Active Substance: CETIRIZINE HYDROCHLORIDE
  4. AZATHIOPRINE [Concomitant]
     Active Substance: AZATHIOPRINE
  5. DULOXETINE [Concomitant]
     Active Substance: DULOXETINE
  6. ALBUTEROL [Concomitant]
     Active Substance: ALBUTEROL
  7. NSLINE [Concomitant]
     Dosage: 100 ML

REACTIONS (5)
  - Wheezing [Recovered/Resolved]
  - Groin pain [Recovered/Resolved]
  - Neuralgia [Unknown]
  - Dyspnoea [Recovered/Resolved]
  - Mobility decreased [Unknown]
